FAERS Safety Report 6204170-4 (Version None)
Quarter: 2009Q2

REPORT INFORMATION
  Report Type: 
  Country: None (occurrence: None)
  Receive Date: 20090527
  Receipt Date: 20090522
  Transmission Date: 20091009
  Serious: Yes (Hospitalization, Other)
  Sender: FDA-Public Use
  Company Number: US-MERCK-0905USA00481

PATIENT
  Age: 68 Year
  Sex: Female
  Weight: 101 kg

DRUGS (28)
  1. ZOCOR [Suspect]
     Indication: BLOOD CHOLESTEROL INCREASED
     Route: 048
     Dates: start: 20080201, end: 20080201
  2. ARIMIDEX [Concomitant]
     Indication: NEOPLASM MALIGNANT
     Route: 065
  3. TAMOXIFEN CITRATE [Concomitant]
     Indication: NEOPLASM MALIGNANT
     Route: 065
  4. DIGOXIN [Concomitant]
     Indication: HYPERTENSION
     Route: 065
  5. LASIX [Concomitant]
     Indication: HYPERTENSION
     Route: 065
  6. SKELAXIN [Concomitant]
     Indication: DIABETES MELLITUS
     Route: 065
  7. COZAAR [Concomitant]
     Indication: DIABETES MELLITUS
     Route: 048
  8. CELEBREX [Concomitant]
     Indication: DIABETES MELLITUS
     Route: 065
  9. GLIPIZIDE [Concomitant]
     Indication: DIABETES MELLITUS
     Route: 065
  10. TRAZODONE HYDROCHLORIDE [Concomitant]
     Route: 065
  11. KLOR-CON [Concomitant]
     Route: 065
  12. ASPIRIN [Concomitant]
     Route: 065
  13. CERTAGEN [Concomitant]
     Route: 065
  14. PAXIL [Concomitant]
     Route: 065
  15. CLONIDINE [Concomitant]
     Route: 065
  16. AMLODIPINE [Concomitant]
     Route: 065
  17. ZETIA [Suspect]
     Indication: BLOOD CHOLESTEROL INCREASED
     Route: 048
     Dates: end: 20090420
  18. WELCHOL [Suspect]
     Indication: BLOOD CHOLESTEROL INCREASED
     Route: 065
  19. NAPROXEN [Concomitant]
     Route: 065
  20. ARIMIDEX [Concomitant]
     Route: 065
  21. ALPRAZOLAM [Concomitant]
     Route: 065
  22. TRAMADOL HYDROCHLORIDE [Concomitant]
     Route: 065
  23. DOCUSATE SODIUM [Concomitant]
     Route: 065
  24. OMEPRAZOLE [Concomitant]
     Route: 048
  25. CARVEDILOL [Concomitant]
     Route: 065
  26. WARFARIN [Concomitant]
     Route: 065
  27. WARFARIN [Concomitant]
     Route: 065
     Dates: start: 20090401
  28. VITAMINS (UNSPECIFIED) [Concomitant]
     Route: 065

REACTIONS (12)
  - BLOOD CHOLESTEROL INCREASED [None]
  - CARDIAC FAILURE [None]
  - DECREASED ACTIVITY [None]
  - DYSPNOEA [None]
  - GAIT DISTURBANCE [None]
  - LIVER DISORDER [None]
  - MULTI-ORGAN FAILURE [None]
  - MUSCLE ATROPHY [None]
  - MYALGIA [None]
  - RENAL FAILURE [None]
  - RENAL INJURY [None]
  - UNDERDOSE [None]
